FAERS Safety Report 10723514 (Version 1)
Quarter: 2015Q1

REPORT INFORMATION
  Report Type: Spontaneous
  Country: JP (occurrence: JP)
  Receive Date: 20150120
  Receipt Date: 20150120
  Transmission Date: 20150721
  Serious: Yes (Death)
  Sender: FDA-Public Use
  Company Number: JP-CIPLA LTD.-2015JP00357

PATIENT

DRUGS (4)
  1. S-1 [Suspect]
     Active Substance: GIMERACIL\OTERACIL\TEGAFUR
     Dosage: 100 MG/DAY, (1.25 M2 =/{ BSA { 1.50 M2) ON DAY 1 TO DAY 7
     Route: 048
  2. GEMCITABINE [Suspect]
     Active Substance: GEMCITABINE\GEMCITABINE HYDROCHLORIDE
     Indication: PANCREATIC CARCINOMA STAGE IV
     Dosage: 1200 MG/M2/ 120 MINS ON DAY 1
  3. S-1 [Suspect]
     Active Substance: GIMERACIL\OTERACIL\TEGAFUR
     Dosage: 120 MG/DAY (BSA } 1.50 M2) ON DAY 1 TO DAY 7
     Route: 048
  4. S-1 [Suspect]
     Active Substance: GIMERACIL\OTERACIL\TEGAFUR
     Indication: PANCREATIC CARCINOMA STAGE IV
     Dosage: 80 MG/DAY, (BSA { 1.25 M2) ON DAY 1 TO DAY 7
     Route: 048

REACTIONS (1)
  - Sinus node dysfunction [Fatal]
